FAERS Safety Report 8743481 (Version 5)
Quarter: 2017Q1

REPORT INFORMATION
  Report Type: Spontaneous
  Country: US (occurrence: US)
  Receive Date: 20120824
  Receipt Date: 20170125
  Transmission Date: 20170429
  Serious: Yes (Hospitalization, Other)
  Sender: FDA-Public Use
  Company Number: US-009507513-1208USA009357

PATIENT
  Sex: Female

DRUGS (4)
  1. ALENDRONATE SODIUM. [Suspect]
     Active Substance: ALENDRONATE SODIUM
     Indication: OSTEOPOROSIS
     Dosage: 70 MG, UNK
     Dates: start: 20080210
  2. ALENDRONATE SODIUM. [Suspect]
     Active Substance: ALENDRONATE SODIUM
     Dosage: 70 MG, UNK
     Route: 065
     Dates: start: 20090117
  3. FOSAMAX [Suspect]
     Active Substance: ALENDRONATE SODIUM
     Dosage: 70 MG, UNK
     Route: 048
     Dates: start: 20050128, end: 200805
  4. FOSAMAX [Suspect]
     Active Substance: ALENDRONATE SODIUM
     Indication: OSTEOPOROSIS
     Dosage: 10 MG, UNK
     Route: 048
     Dates: start: 20000919, end: 20050127

REACTIONS (27)
  - Limb asymmetry [Unknown]
  - Tibia fracture [Unknown]
  - Hospitalisation [Unknown]
  - Peripheral arterial occlusive disease [Unknown]
  - Cerebrovascular accident [Unknown]
  - Carotid artery stenosis [Unknown]
  - Hyperlipidaemia [Unknown]
  - Cardiac failure congestive [Unknown]
  - Dementia [Unknown]
  - Hypertension [Unknown]
  - Faecaloma [Unknown]
  - Hyponatraemia [Unknown]
  - Fall [Unknown]
  - Dyslipidaemia [Unknown]
  - Bradycardia [Recovered/Resolved]
  - Fall [Unknown]
  - Back pain [Unknown]
  - Femur fracture [Unknown]
  - Open reduction of fracture [Unknown]
  - Impaired healing [Unknown]
  - Depression [Unknown]
  - Foot fracture [Unknown]
  - Gastrooesophageal reflux disease [Unknown]
  - Bladder dilatation [Unknown]
  - Atrial fibrillation [Unknown]
  - Deep vein thrombosis [Unknown]
  - Compression fracture [Unknown]

NARRATIVE: CASE EVENT DATE: 2001
